FAERS Safety Report 11636284 (Version 1)
Quarter: 2015Q4

REPORT INFORMATION
  Report Type: Report from Study
  Country: US (occurrence: US)
  Receive Date: 20151016
  Receipt Date: 20151016
  Transmission Date: 20160304
  Serious: Yes (Hospitalization, Other)
  Sender: FDA-Public Use
  Company Number: US-ABBVIE-15K-163-1478698-00

PATIENT
  Age: 56 Year
  Sex: Male

DRUGS (1)
  1. HUMIRA [Suspect]
     Active Substance: ADALIMUMAB
     Indication: CROHN^S DISEASE
     Route: 065
     Dates: start: 2012, end: 20150814

REACTIONS (9)
  - Arthropod bite [Recovering/Resolving]
  - Weight decreased [Recovering/Resolving]
  - Back pain [Unknown]
  - Photophobia [Recovering/Resolving]
  - Vision blurred [Unknown]
  - Diplopia [Unknown]
  - Blindness unilateral [Recovering/Resolving]
  - Lyme disease [Unknown]
  - VIIth nerve paralysis [Recovered/Resolved]

NARRATIVE: CASE EVENT DATE: 2015
